FAERS Safety Report 5144425-8 (Version None)
Quarter: 2006Q4

REPORT INFORMATION
  Report Type: 
  Country: None (occurrence: None)
  Receive Date: 20061031
  Receipt Date: 20061024
  Transmission Date: 20070319
  Serious: Yes (Hospitalization)
  Sender: FDA-Public Use
  Company Number: 2006129619

PATIENT
  Age: 31 Year
  Sex: Female

DRUGS (5)
  1. SALAZOPYRIN (SULFASALAZINE) [Suspect]
     Indication: PSORIATIC ARTHROPATHY
     Dosage: 3000 MG (1000 MG, 3 IN 1 D), ORAL
     Route: 048
  2. METHOTREXATE [Suspect]
     Indication: PSORIATIC ARTHROPATHY
     Dosage: 10 MG (10 MG, 1 IN 1 D), ORAL
     Route: 048
  3. VOLTAREN [Concomitant]
  4. FOLACIN (CALCIUM PHOSPHATE, FOLIC ACID) [Concomitant]
  5. ORTHONETT (MESTRANOL, NORETHISTERONE) [Concomitant]

REACTIONS (8)
  - CONFUSIONAL STATE [None]
  - DEPERSONALISATION [None]
  - DIZZINESS [None]
  - FEELING ABNORMAL [None]
  - HEADACHE [None]
  - HEART RATE INCREASED [None]
  - STRESS [None]
  - TEMPORAL LOBE EPILEPSY [None]
